FAERS Safety Report 26109469 (Version 1)
Quarter: 2025Q4

REPORT INFORMATION
  Report Type: Spontaneous
  Country: US (occurrence: US)
  Receive Date: 20251201
  Receipt Date: 20251201
  Transmission Date: 20260118
  Serious: No
  Sender: PFIZER
  Company Number: US-PFIZER INC-202500232887

PATIENT
  Age: 57 Year
  Sex: Female

DRUGS (1)
  1. TRECATOR [Suspect]
     Active Substance: ETHIONAMIDE
     Dosage: UNK

REACTIONS (2)
  - Cognitive disorder [Unknown]
  - Drug hypersensitivity [Unknown]

NARRATIVE: CASE EVENT DATE: 20130101
